FAERS Safety Report 6833813-7 (Version None)
Quarter: 2010Q3

REPORT INFORMATION
  Report Type: 
  Country: None (occurrence: None)
  Receive Date: 20100712
  Receipt Date: 20070402
  Transmission Date: 20110219
  Serious: No
  Sender: FDA-Public Use
  Company Number: US-PFIZER INC-2007027478

PATIENT
  Sex: Female
  Weight: 44.45 kg

DRUGS (2)
  1. CHANTIX [Suspect]
     Indication: SMOKING CESSATION THERAPY
     Dates: start: 20070304, end: 20070318
  2. ATARAX [Concomitant]

REACTIONS (2)
  - PAIN [None]
  - PRURITUS GENERALISED [None]
